FAERS Safety Report 4378204-6 (Version None)
Quarter: 2004Q2

REPORT INFORMATION
  Report Type: 
  Country: None (occurrence: None)
  Receive Date: 20040609
  Receipt Date: 20040520
  Transmission Date: 20050107
  Serious: Yes (Hospitalization)
  Sender: FDA-Public Use
  Company Number: US_030393542

PATIENT
  Age: 57 Year
  Sex: Female
  Weight: 69 kg

DRUGS (13)
  1. PEMETREXED (LY231514) [Suspect]
     Indication: NON-SMALL CELL LUNG CANCER
     Dosage: 375 MG/M2 OTHER
     Route: 050
     Dates: start: 20020701
  2. CARBOPLATIN [Suspect]
     Indication: NON-SMALL CELL LUNG CANCER
     Dates: start: 20020701
  3. FOLIC ACID [Concomitant]
  4. DARVOCET-N 100 [Concomitant]
  5. ATIVAN [Concomitant]
  6. BENADRYL [Concomitant]
  7. HALDOL [Concomitant]
  8. CORTISOL [Concomitant]
  9. VICODIN [Concomitant]
  10. CITRACAL (CALCIUM CITRATE) [Concomitant]
  11. EXTRA STRENGTH TYLENOL [Concomitant]
  12. BENADRYL ALLERGY/SINUS HEADACHE [Concomitant]
  13. PEPCID [Concomitant]

REACTIONS (3)
  - FEBRILE NEUTROPENIA [None]
  - PNEUMONIA [None]
  - SPUTUM CULTURE POSITIVE [None]
